FAERS Safety Report 10622632 (Version 1)
Quarter: 2014Q4

REPORT INFORMATION
  Report Type: Spontaneous
  Country: US (occurrence: None)
  Receive Date: 20141202
  Receipt Date: 20141202
  Transmission Date: 20150529
  Serious: Yes (Other)
  Sender: FDA-Public Use
  Company Number: None

PATIENT
  Age: 41 Year
  Sex: Male
  Weight: 88.45 kg

DRUGS (7)
  1. EFFEXOR [Suspect]
     Active Substance: VENLAFAXINE HYDROCHLORIDE
     Indication: DEPRESSION
     Dosage: 250MG, ONCE DAILY, BY MOUTH
     Route: 048
     Dates: start: 20140210
  2. MULTIVITAMINS [Concomitant]
     Active Substance: VITAMINS
  3. FLONASE [Concomitant]
     Active Substance: FLUTICASONE PROPIONATE
  4. TOPAMAX [Concomitant]
     Active Substance: TOPIRAMATE
  5. EFFEXOR [Suspect]
     Active Substance: VENLAFAXINE HYDROCHLORIDE
     Indication: MIGRAINE
     Dosage: 250MG, ONCE DAILY, BY MOUTH
     Route: 048
     Dates: start: 20140210
  6. GABAPENTIN. [Concomitant]
     Active Substance: GABAPENTIN
  7. ZOFRAM [Concomitant]

REACTIONS (9)
  - Dizziness [None]
  - Drug dose omission [None]
  - Paraesthesia [None]
  - Eye disorder [None]
  - Nightmare [None]
  - Hyperhidrosis [None]
  - Feeling abnormal [None]
  - Insomnia [None]
  - Paranoia [None]

NARRATIVE: CASE EVENT DATE: 20141107
